FAERS Safety Report 7632579-0 (Version None)
Quarter: 2011Q3

REPORT INFORMATION
  Report Type: 
  Country: None (occurrence: None)
  Receive Date: 20110725
  Receipt Date: 20101020
  Transmission Date: 20111222
  Serious: No
  Sender: FDA-Public Use
  Company Number: US-BRISTOL-MYERS SQUIBB COMPANY-15342751

PATIENT
  Age: 88 Year
  Sex: Female

DRUGS (4)
  1. HYDROCHLOROTHIAZIDE [Concomitant]
  2. WARFARIN SODIUM [Suspect]
  3. COUMADIN [Suspect]
     Dosage: 3 MONTHS AGO
  4. POTASSIUM CHLORIDE [Concomitant]

REACTIONS (4)
  - FEELING COLD [None]
  - FATIGUE [None]
  - NAIL HYPERTROPHY [None]
  - ALOPECIA [None]
